FAERS Safety Report 7001651-0 (Version None)
Quarter: 2010Q3

REPORT INFORMATION
  Report Type: 
  Country: None (occurrence: None)
  Receive Date: 20100920
  Receipt Date: 20100909
  Transmission Date: 20110219
  Serious: Yes (Life-Threatening, Hospitalization)
  Sender: FDA-Public Use
  Company Number: JP-JNJFOC-20100300977

PATIENT
  Sex: Female
  Weight: 30 kg

DRUGS (33)
  1. REMICADE [Suspect]
     Indication: CROHN'S DISEASE
     Route: 042
  2. REMICADE [Suspect]
     Route: 042
  3. REMICADE [Suspect]
     Route: 042
  4. IMURAN [Suspect]
     Indication: CROHN'S DISEASE
     Route: 048
  5. IMURAN [Suspect]
     Route: 048
  6. IMURAN [Suspect]
     Route: 048
  7. PREDONINE [Suspect]
     Indication: CROHN'S DISEASE
     Route: 048
  8. PREDONINE [Suspect]
     Route: 048
  9. PREDONINE [Suspect]
     Route: 048
  10. PREDONINE [Suspect]
     Route: 048
  11. PREDONINE [Suspect]
     Route: 048
  12. PREDONINE [Suspect]
     Route: 048
  13. PREDONINE [Suspect]
     Route: 048
  14. PREDONINE [Suspect]
     Route: 048
  15. PREDONINE [Suspect]
     Route: 048
  16. 5-ASA [Concomitant]
     Indication: CROHN'S DISEASE
  17. PROTON PUMP INHIBITOR [Concomitant]
     Route: 048
  18. ELENTAL [Concomitant]
     Route: 048
  19. SOLITAX-H [Concomitant]
     Route: 048
  20. SOLITA- NO 3 [Concomitant]
  21. AMINO ACID INJ [Concomitant]
  22. INTRALIPID 10% [Concomitant]
  23. NOVORAPID [Concomitant]
  24. THYRADIN [Concomitant]
     Route: 048
  25. THYRADIN [Concomitant]
     Route: 048
  26. THYRADIN [Concomitant]
     Route: 048
  27. ASPARTATE POTASSIUM [Concomitant]
     Route: 048
  28. BIO THREE [Concomitant]
     Route: 048
  29. BLOSTAR M [Concomitant]
     Route: 048
  30. ALFAROL [Concomitant]
     Route: 048
  31. COLONEL [Concomitant]
     Route: 048
  32. PENLES [Concomitant]
  33. URSO 250 [Concomitant]
     Route: 048

REACTIONS (10)
  - BACTERAEMIA [None]
  - CONVULSION [None]
  - DEVICE RELATED SEPSIS [None]
  - DIARRHOEA [None]
  - ECZEMA [None]
  - ENCEPHALOPATHY [None]
  - HEPATIC FUNCTION ABNORMAL [None]
  - HYPOKALAEMIA [None]
  - INFLUENZA [None]
  - RASH [None]
